FAERS Safety Report 22647032 (Version 1)
Quarter: 2023Q2

REPORT INFORMATION
  Report Type: Spontaneous
  Country: US (occurrence: US)
  Receive Date: 20230627
  Receipt Date: 20230627
  Transmission Date: 20230721
  Serious: No
  Sender: FDA-Public Use
  Company Number: US-PERRIGO-23US003899

PATIENT

DRUGS (4)
  1. NASONEX [Suspect]
     Active Substance: MOMETASONE FUROATE
     Indication: Rhinorrhoea
     Dosage: 50 MCG EACH NOSTRIL, QD
     Route: 045
     Dates: start: 20230310, end: 20230310
  2. NASONEX [Suspect]
     Active Substance: MOMETASONE FUROATE
     Indication: Perennial allergy
     Dosage: 100 MCG EACH NOSTRIL, QD
     Route: 045
     Dates: start: 20230311, end: 20230311
  3. NASONEX [Suspect]
     Active Substance: MOMETASONE FUROATE
     Dosage: 50 MCG EACH NOSTRIL, QD
     Route: 045
     Dates: start: 20230312, end: 20230315
  4. XYZAL [Concomitant]
     Active Substance: LEVOCETIRIZINE DIHYDROCHLORIDE
     Indication: Perennial allergy
     Dosage: UNK
     Route: 065
     Dates: start: 2019

REACTIONS (3)
  - Condition aggravated [Recovered/Resolved]
  - Drug ineffective [Unknown]
  - Underdose [Recovered/Resolved]

NARRATIVE: CASE EVENT DATE: 20230310
